FAERS Safety Report 10405141 (Version 2)
Quarter: 2016Q1

REPORT INFORMATION
  Report Type: Spontaneous
  Country: US (occurrence: None)
  Receive Date: 20140820
  Receipt Date: 20160301
  Transmission Date: 20160525
  Serious: Yes (Hospitalization, Other)
  Sender: FDA-Public Use
  Company Number: ADR-2014-01454

PATIENT
  Age: 59 Year
  Sex: Female

DRUGS (2)
  1. DILAUDID [Suspect]
     Active Substance: HYDROMORPHONE HYDROCHLORIDE
     Indication: PAIN
     Dosage: 1.1MG/DAY
  2. BACLOFEN INTRATHECAL 555MCG/ML [Suspect]
     Active Substance: BACLOFEN
     Indication: PAIN
     Dosage: 152.68MCG/DAY

REACTIONS (9)
  - Infusion site mass [None]
  - Myocardial infarction [None]
  - Aphasia [None]
  - Back pain [None]
  - Pain in extremity [None]
  - Infusion site granuloma [None]
  - Mental status changes [None]
  - Unresponsive to stimuli [None]
  - Seizure [None]
